FAERS Safety Report 20946377 (Version 3)
Quarter: 2022Q3

REPORT INFORMATION
  Report Type: Spontaneous
  Country: US (occurrence: None)
  Receive Date: 20220610
  Receipt Date: 20220829
  Transmission Date: 20221027
  Serious: Yes (Hospitalization)
  Sender: FDA-Public Use
  Company Number: 2022A208294

PATIENT
  Age: 67 Year
  Sex: Female
  Weight: 104.3 kg

DRUGS (3)
  1. BYETTA [Suspect]
     Active Substance: EXENATIDE
     Indication: Type 2 diabetes mellitus
     Dosage: 250 UG/ML
     Route: 058
     Dates: start: 2009, end: 2009
  2. BYETTA [Suspect]
     Active Substance: EXENATIDE
     Indication: Type 2 diabetes mellitus
     Dosage: 250 UG/ML
     Route: 058
     Dates: start: 2009
  3. PHENTERMINE [Suspect]
     Active Substance: PHENTERMINE
     Indication: Weight decreased
     Dosage: 37.0MG UNKNOWN
     Route: 065
     Dates: start: 202205

REACTIONS (10)
  - Nephrolithiasis [Unknown]
  - Vertigo [Unknown]
  - Glycosylated haemoglobin increased [Unknown]
  - Type 2 diabetes mellitus [Unknown]
  - Weight increased [Unknown]
  - Weight decreased [Unknown]
  - Nausea [Unknown]
  - Drug ineffective [Unknown]
  - Device mechanical issue [Unknown]
  - Needle issue [Unknown]

NARRATIVE: CASE EVENT DATE: 20090101
